FAERS Safety Report 4614769-4 (Version None)
Quarter: 2005Q1

REPORT INFORMATION
  Report Type: 
  Country: None (occurrence: None)
  Receive Date: 20050322
  Receipt Date: 20050310
  Transmission Date: 20050727
  Serious: Yes (Hospitalization)
  Sender: FDA-Public Use
  Company Number: AU-BRISTOL-MYERS SQUIBB COMPANY-12899258

PATIENT
  Age: 29 Year
  Sex: Male

DRUGS (3)
  1. ABILIFY [Suspect]
     Route: 048
  2. CLOZARIL [Suspect]
     Indication: SCHIZOPHRENIA
     Dosage: PROGR. DECR. FROM 550 MG ON 27-JAN-2004 TO 200 MG; RECHALLENGED (UNSPEC. DATE)TOLERATING 75 MG.
     Route: 048
     Dates: start: 20040906
  3. VALIUM [Concomitant]

REACTIONS (6)
  - BODY TEMPERATURE INCREASED [None]
  - HYPERHIDROSIS [None]
  - LOSS OF CONSCIOUSNESS [None]
  - NEUROLEPTIC MALIGNANT SYNDROME [None]
  - PSYCHOTIC DISORDER [None]
  - REBOUND EFFECT [None]
